FAERS Safety Report 6510098-2 (Version None)
Quarter: 2009Q4

REPORT INFORMATION
  Report Type: 
  Country: None (occurrence: None)
  Receive Date: 20091222
  Receipt Date: 20091006
  Transmission Date: 20100525
  Serious: No
  Sender: FDA-Public Use
  Company Number: US-BAUSCH-2009BL005034

PATIENT
  Age: 69 Year
  Sex: Female

DRUGS (3)
  1. ALAWAY [Suspect]
     Indication: HYPERSENSITIVITY
     Route: 047
     Dates: start: 20080101, end: 20091006
  2. INSULIN [Concomitant]
  3. LISINOPRIL [Concomitant]

REACTIONS (1)
  - DRUG INEFFECTIVE [None]
